FAERS Safety Report 12836792 (Version 1)
Quarter: 2016Q4

REPORT INFORMATION
  Report Type: Spontaneous
  Country: US (occurrence: US)
  Receive Date: 20161011
  Receipt Date: 20161011
  Transmission Date: 20170207
  Serious: No
  Sender: FDA-Public Use
  Company Number: US-TEVA-700355USA

PATIENT
  Sex: Female

DRUGS (1)
  1. PROVIGIL [Suspect]
     Active Substance: MODAFINIL
     Indication: INSOMNIA
     Dosage: 400 MILLIGRAM DAILY;
     Route: 048

REACTIONS (3)
  - Off label use [Unknown]
  - Cognitive disorder [Unknown]
  - Asthenia [Unknown]
